FAERS Safety Report 4726137-5 (Version None)
Quarter: 2005Q3

REPORT INFORMATION
  Report Type: 
  Country: None (occurrence: None)
  Receive Date: 20050725
  Receipt Date: 20050725
  Transmission Date: 20060218
  Serious: Yes (Death)
  Sender: FDA-Public Use
  Company Number: None

PATIENT
  Age: 82 Year
  Sex: Male
  Weight: 74 kg

DRUGS (9)
  1. OXALIPLATIN (5MG/ML) [Suspect]
     Indication: COLON CANCER METASTATIC
     Dosage: 240MG ONCE Q 3 WKS/IV
     Route: 042
     Dates: start: 20050610
  2. CAPECITABINE (500MG + 150MG) [Suspect]
     Indication: COLON CANCER METASTATIC
     Dosage: 1500MG BID X14DAYS/PO
     Route: 048
     Dates: start: 20050610, end: 20050624
  3. BEVACIZUMAB [Concomitant]
  4. ARANESP [Concomitant]
  5. PRILOSEC [Concomitant]
  6. IRON [Concomitant]
  7. VITAMIN B-12 [Concomitant]
  8. VITAMIN E [Concomitant]
  9. CALCIUM GLUCONATE [Concomitant]

REACTIONS (6)
  - METABOLIC ACIDOSIS [None]
  - PNEUMONIA ASPIRATION [None]
  - REFUSAL OF TREATMENT BY RELATIVE [None]
  - RESPIRATORY DISTRESS [None]
  - SEPTIC SHOCK [None]
  - VOMITING [None]
